FAERS Safety Report 9405722 (Version 2)
Quarter: 2013Q3

REPORT INFORMATION
  Report Type: Spontaneous
  Country: US (occurrence: US)
  Receive Date: 20130717
  Receipt Date: 20130729
  Transmission Date: 20140515
  Serious: No
  Sender: FDA-Public Use
  Company Number: US-009507513-1307USA006527

PATIENT
  Age: 74 Year
  Sex: Male
  Weight: 92.97 kg

DRUGS (2)
  1. MIRALAX [Suspect]
     Indication: CONSTIPATION
     Dosage: UNK, QD
     Route: 048
     Dates: start: 20130615, end: 20130623
  2. MIRALAX [Suspect]
     Indication: MEDICAL OBSERVATION

REACTIONS (1)
  - Drug effect delayed [Unknown]
